FAERS Safety Report 14199418 (Version 4)
Quarter: 2018Q1

REPORT INFORMATION
  Report Type: Report from Study
  Country: IT (occurrence: IT)
  Receive Date: 20171117
  Receipt Date: 20180130
  Transmission Date: 20180508
  Serious: Yes (Other)
  Sender: FDA-Public Use
  Company Number: IT-VIFOR (INTERNATIONAL) INC.-VIT-2017-12729

PATIENT
  Age: 80 Year
  Sex: Male
  Weight: 58.5 kg

DRUGS (14)
  1. MAALOX ANTACID [Concomitant]
     Active Substance: ALUMINUM HYDROXIDE\DIMETHICONE\MAGNESIUM HYDROXIDE
     Indication: HYPERKALAEMIA
     Route: 048
     Dates: start: 20130801, end: 20170803
  2. COUMADIN [Concomitant]
     Active Substance: WARFARIN SODIUM
     Route: 048
  3. EPOETIN ZETA [Concomitant]
     Active Substance: ERYTHROPOIETIN
     Indication: ANAEMIA
     Route: 058
     Dates: start: 20150619
  4. DIBASE [Concomitant]
     Active Substance: CHOLECALCIFEROL
     Indication: HYPOVITAMINOSIS
     Dosage: 30 DROPS
     Route: 048
     Dates: start: 20140310
  5. FOZNOL [Concomitant]
     Dates: start: 20130808
  6. FERLIXIT [Concomitant]
     Active Substance: SODIUM FERRIC GLUCONATE COMPLEX
     Indication: ANAEMIA
     Route: 058
     Dates: start: 20141001, end: 20170916
  7. PEPTAZOL [Concomitant]
     Active Substance: PANTOPRAZOLE SODIUM
     Indication: URAEMIC GASTROPATHY
     Route: 048
     Dates: start: 20140911
  8. FOZNOL [Concomitant]
     Indication: HYPERKALAEMIA
     Route: 048
     Dates: start: 20131008
  9. VELPHORO [Suspect]
     Active Substance: FERRIC OXYHYDROXIDE
     Indication: HYPERPHOSPHATAEMIA
     Route: 048
     Dates: start: 20170804
  10. VELPHORO [Suspect]
     Active Substance: FERRIC OXYHYDROXIDE
     Route: 048
     Dates: start: 20171009
  11. COUMADIN [Concomitant]
     Active Substance: WARFARIN SODIUM
     Indication: ATRIAL FIBRILLATION
     Route: 048
     Dates: start: 20160516
  12. DIDROGYL [Concomitant]
     Active Substance: CALCIFEDIOL
     Indication: HYPOVITAMINOSIS
     Dosage: 3 DROPS
     Route: 048
     Dates: start: 20131008
  13. IVOR [Concomitant]
     Active Substance: BEMIPARIN SODIUM
     Indication: ANTICOAGULANT THERAPY
     Route: 058
     Dates: start: 20151223
  14. ROCALTROL [Concomitant]
     Active Substance: CALCITRIOL
     Indication: HYPERPARATHYROIDISM
     Route: 048
     Dates: start: 20130913

REACTIONS (2)
  - Gastrointestinal haemorrhage [Recovered/Resolved]
  - Bowel movement irregularity [Recovered/Resolved]

NARRATIVE: CASE EVENT DATE: 20170823
